FAERS Safety Report 18183754 (Version 2)
Quarter: 2020Q3

REPORT INFORMATION
  Report Type: Spontaneous
  Country: US (occurrence: US)
  Receive Date: 20200822
  Receipt Date: 20200914
  Transmission Date: 20201103
  Serious: No
  Sender: FDA-Public Use
  Company Number: US-009507513-2008USA009901

PATIENT
  Age: 28 Year
  Sex: Female

DRUGS (2)
  1. NEXPLANON [Suspect]
     Active Substance: ETONOGESTREL
     Indication: CONTRACEPTION
     Dosage: 1 DOSAGE FORM, (REPORTED AS: 68 MG) (FREQUENCY REPORTED AS ONCE), LEFT UPPER ARM
     Route: 059
     Dates: start: 20190723, end: 20200904
  2. NEXPLANON [Suspect]
     Active Substance: ETONOGESTREL
     Indication: CONTRACEPTION
     Dosage: 1 IMPLANT, LEFT UPPER ARM
     Route: 059
     Dates: start: 20160723, end: 20190723

REACTIONS (5)
  - Device placement issue [Recovered/Resolved]
  - Drug intolerance [Unknown]
  - Menorrhagia [Unknown]
  - Complication of device removal [Recovered/Resolved]
  - Dysmenorrhoea [Unknown]

NARRATIVE: CASE EVENT DATE: 20190723
